FAERS Safety Report 23246800 (Version 1)
Quarter: 2023Q4

REPORT INFORMATION
  Report Type: Spontaneous
  Country: US (occurrence: None)
  Receive Date: 20231130
  Receipt Date: 20231130
  Transmission Date: 20240110
  Serious: No
  Sender: FDA-Public Use
  Company Number: None

PATIENT
  Age: 73 Year
  Sex: Female

DRUGS (1)
  1. JAKAFI [Suspect]
     Active Substance: RUXOLITINIB
     Dates: start: 20231024

REACTIONS (3)
  - Therapy change [None]
  - Product use issue [None]
  - Surgery [None]

NARRATIVE: CASE EVENT DATE: 20231126
